FAERS Safety Report 18731692 (Version 2)
Quarter: 2021Q4

REPORT INFORMATION
  Report Type: Other
  Country: US (occurrence: US)
  Receive Date: 20210112
  Receipt Date: 20211028
  Transmission Date: 20220303
  Serious: Yes (Death)
  Sender: FDA-Public Use
  Company Number: US-ROCHE-2735508

PATIENT
  Age: 90 Year
  Sex: Female

DRUGS (4)
  1. LUCENTIS [Suspect]
     Active Substance: RANIBIZUMAB
     Indication: Type 2 diabetes mellitus
     Dosage: VIALS 0.05 ML OF A 6 MG/ML SOLUTION, INJECT (0.05 ML); RT, LT EYE
     Route: 050
     Dates: start: 2017
  2. LUCENTIS [Suspect]
     Active Substance: RANIBIZUMAB
     Indication: Diabetic retinopathy
  3. LUCENTIS [Suspect]
     Active Substance: RANIBIZUMAB
     Indication: Macular oedema
  4. LUCENTIS [Suspect]
     Active Substance: RANIBIZUMAB
     Indication: Diabetic retinal oedema

REACTIONS (1)
  - Death [Fatal]

NARRATIVE: CASE EVENT DATE: 20181207
